FAERS Safety Report 6097191-6 (Version None)
Quarter: 2009Q1

REPORT INFORMATION
  Report Type: 
  Country: None (occurrence: None)
  Receive Date: 20090227
  Receipt Date: 20090224
  Transmission Date: 20090719
  Serious: Yes (Other)
  Sender: FDA-Public Use
  Company Number: A0770726A

PATIENT
  Sex: Female

DRUGS (4)
  1. WELLBUTRIN XL [Suspect]
     Indication: DEPRESSION
     Dosage: 300MG UNKNOWN
     Route: 048
     Dates: start: 20060101
  2. PROVIGIL [Suspect]
     Indication: FATIGUE
     Dosage: 100MG TWICE PER DAY
     Route: 048
  3. BUSPIRONE HCL [Concomitant]
  4. BETASERON [Concomitant]

REACTIONS (3)
  - CONVULSION [None]
  - DRUG INTERACTION [None]
  - OFF LABEL USE [None]
